FAERS Safety Report 22319103 (Version 1)
Quarter: 2023Q2

REPORT INFORMATION
  Report Type: Spontaneous
  Country: GB (occurrence: GB)
  Receive Date: 20230515
  Receipt Date: 20230515
  Transmission Date: 20230722
  Serious: Yes (Death, Other)
  Sender: FDA-Public Use
  Company Number: GB-ROCHE-3338873

PATIENT
  Age: 60 Year
  Sex: Female
  Weight: 65.2 kg

DRUGS (17)
  1. CARBOPLATIN [Suspect]
     Active Substance: CARBOPLATIN
     Indication: Lung cancer metastatic
     Dosage: DOSE OF STUDY DRUG FIRST ADMINISTERED 400 400
     Route: 065
     Dates: start: 20200728
  2. ATEZOLIZUMAB [Suspect]
     Active Substance: ATEZOLIZUMAB
     Indication: Lung cancer metastatic
     Route: 041
     Dates: start: 20200728
  3. BEVACIZUMAB [Suspect]
     Active Substance: BEVACIZUMAB
     Indication: Lung cancer metastatic
     Dosage: DRUG DOSE FIRST ADMINISTERED IS 900 900
     Route: 065
     Dates: start: 20200728
  4. PACLITAXEL [Suspect]
     Active Substance: PACLITAXEL
     Indication: Lung cancer metastatic
     Dosage: DOSE OF STUDY DRUG FIRST ADMINISTERED 300 300
     Route: 065
     Dates: start: 20200728
  5. AMITRIPTYLINE [Concomitant]
     Active Substance: AMITRIPTYLINE
     Indication: Depression
     Dosage: UNKNOWN
     Route: 065
     Dates: start: 20200728
  6. ASPIRIN [Concomitant]
     Active Substance: ASPIRIN
     Indication: Product used for unknown indication
     Dosage: UNKNOWN
     Route: 065
     Dates: start: 20200824, end: 20200925
  7. DEXAMETHASONE [Concomitant]
     Active Substance: DEXAMETHASONE
     Indication: Product used for unknown indication
     Dosage: UNKNOWN
     Route: 065
     Dates: start: 20200729
  8. DOMPERIDONE [Concomitant]
     Active Substance: DOMPERIDONE
     Indication: Product used for unknown indication
     Dosage: UNKNOWN
     Route: 065
     Dates: start: 20200729
  9. ENTECAVIR [Concomitant]
     Active Substance: ENTECAVIR
     Indication: Product used for unknown indication
     Dosage: UNKNOWN
     Route: 065
     Dates: start: 20200818
  10. ERLOTINIB [Concomitant]
     Active Substance: ERLOTINIB
     Indication: Product used for unknown indication
     Dosage: UNKNOWN
     Route: 065
  11. FILGRASTIM [Concomitant]
     Active Substance: FILGRASTIM
     Indication: Product used for unknown indication
     Dosage: UNKNOWN
     Route: 065
     Dates: start: 20200729
  12. LACTULOSE [Concomitant]
     Active Substance: LACTULOSE
     Indication: Product used for unknown indication
     Dosage: UNKNOWN
     Route: 065
     Dates: start: 20180111
  13. LOPERAMIDE [Concomitant]
     Active Substance: LOPERAMIDE
     Indication: Product used for unknown indication
     Dosage: UNKNOWN
     Route: 065
     Dates: start: 20200729
  14. ONDANSETRON [Concomitant]
     Active Substance: ONDANSETRON
     Indication: Product used for unknown indication
     Dosage: UNKNOWN
     Route: 065
     Dates: start: 20200729
  15. OSIMERTINIB [Concomitant]
     Active Substance: OSIMERTINIB
     Indication: Product used for unknown indication
     Dosage: UNKNOWN
     Route: 065
  16. PREGABALIN [Concomitant]
     Active Substance: PREGABALIN
     Indication: Product used for unknown indication
     Dosage: UNKNOWN
     Route: 065
  17. RANITIDINE [Concomitant]
     Active Substance: RANITIDINE
     Indication: Product used for unknown indication
     Dosage: UNKNOWN
     Route: 065
     Dates: start: 20180111

REACTIONS (2)
  - Death [Fatal]
  - Stomatitis [Recovering/Resolving]

NARRATIVE: CASE EVENT DATE: 20200817
